FAERS Safety Report 25163696 (Version 2)
Quarter: 2025Q2

REPORT INFORMATION
  Report Type: Report from Study
  Country: US (occurrence: US)
  Receive Date: 20250405
  Receipt Date: 20250618
  Transmission Date: 20250717
  Serious: No
  Sender: SANOFI AVENTIS
  Company Number: US-SA-2025SA097628

PATIENT
  Age: 73 Year
  Sex: Female

DRUGS (10)
  1. DUPIXENT [Suspect]
     Active Substance: DUPILUMAB
     Indication: Neurodermatitis
     Dosage: 300 MG, QOW
     Route: 058
  2. OMEPRAZOLE [Concomitant]
     Active Substance: OMEPRAZOLE
  3. SPIRONOLACTONE [Concomitant]
     Active Substance: SPIRONOLACTONE
  4. ZEPBOUND [Concomitant]
     Active Substance: TIRZEPATIDE
  5. XARELTO [Concomitant]
     Active Substance: RIVAROXABAN
  6. DULOXETINE [Concomitant]
     Active Substance: DULOXETINE
  7. LOSARTAN [Concomitant]
     Active Substance: LOSARTAN
  8. CALCITRIOL [Concomitant]
     Active Substance: CALCITRIOL
  9. FLECAINIDE [Concomitant]
     Active Substance: FLECAINIDE
  10. SYNTHROID [Concomitant]
     Active Substance: LEVOTHYROXINE SODIUM

REACTIONS (2)
  - Injection site pain [Unknown]
  - Injection site bruising [Unknown]
